FAERS Safety Report 15191443 (Version 1)
Quarter: 2018Q3

REPORT INFORMATION
  Report Type: Report from Study
  Country: US (occurrence: US)
  Receive Date: 20180724
  Receipt Date: 20180724
  Transmission Date: 20181010
  Serious: Yes (Other)
  Sender: FDA-Public Use
  Company Number: US-AMGEN-USASL2018047599

PATIENT
  Age: 49 Year
  Sex: Male
  Weight: 136.5 kg

DRUGS (3)
  1. KYPROLIS [Suspect]
     Active Substance: CARFILZOMIB
     Indication: PLASMA CELL MYELOMA
     Dosage: 56 MG/M2 (120 MG), UNK
     Route: 042
     Dates: start: 20171007
  2. KYPROLIS [Suspect]
     Active Substance: CARFILZOMIB
     Dosage: 56 MG/M2 (82 MG), UNK (30 % DOSE REDUCTION)
     Route: 042
  3. KYPROLIS [Suspect]
     Active Substance: CARFILZOMIB
     Dosage: 37.33 MG/M2, WEEKLY (DOSE REDUCED)
     Route: 042
     Dates: end: 20180503

REACTIONS (5)
  - Myalgia [Not Recovered/Not Resolved]
  - Feeling abnormal [Unknown]
  - Surgery [Unknown]
  - Plasma cell myeloma [Unknown]
  - Platelet count decreased [Unknown]

NARRATIVE: CASE EVENT DATE: 20171212
